FAERS Safety Report 19205854 (Version 1)
Quarter: 2021Q2

REPORT INFORMATION
  Report Type: Spontaneous
  Country: US (occurrence: US)
  Receive Date: 20210503
  Receipt Date: 20210503
  Transmission Date: 20210717
  Serious: Yes (Hospitalization)
  Sender: FDA-Public Use
  Company Number: None

PATIENT
  Age: 65 Year
  Sex: Female

DRUGS (22)
  1. COLACE [Concomitant]
     Active Substance: DOCUSATE SODIUM
  2. CLINDAMYCIN. [Concomitant]
     Active Substance: CLINDAMYCIN
  3. CLOPIDOGREL [Concomitant]
     Active Substance: CLOPIDOGREL BISULFATE
  4. BENADRYL [Concomitant]
     Active Substance: DIPHENHYDRAMINE HYDROCHLORIDE
  5. PROAIR HFA [Concomitant]
     Active Substance: ALBUTEROL SULFATE
  6. ALBUTEROL. [Concomitant]
     Active Substance: ALBUTEROL
  7. METOPROLOL. [Concomitant]
     Active Substance: METOPROLOL
  8. MONTELUKAST [Concomitant]
     Active Substance: MONTELUKAST SODIUM
  9. FOLIC ACID. [Concomitant]
     Active Substance: FOLIC ACID
  10. FAMOTIDINE. [Concomitant]
     Active Substance: FAMOTIDINE
  11. HUMIRA [Suspect]
     Active Substance: ADALIMUMAB
     Indication: CROHN^S DISEASE
     Dosage: ?          OTHER FREQUENCY:EVERY TWO WEEKS;?
     Route: 058
     Dates: start: 20190124
  12. VELTASSA [Concomitant]
     Active Substance: PATIROMER
  13. NITROSTAT [Concomitant]
     Active Substance: NITROGLYCERIN
  14. VITAMIN D3 [Concomitant]
     Active Substance: CHOLECALCIFEROL
  15. GLYBURIDE. [Concomitant]
     Active Substance: GLYBURIDE
  16. LISINOPRIL. [Concomitant]
     Active Substance: LISINOPRIL
  17. SUCRALFATE. [Concomitant]
     Active Substance: SUCRALFATE
  18. SODIUM BICARB [Concomitant]
     Active Substance: SODIUM BICARBONATE
  19. ATORVASTATIN [Concomitant]
     Active Substance: ATORVASTATIN
  20. FLONASE [Concomitant]
     Active Substance: FLUTICASONE PROPIONATE
  21. LEVOTHYROXINE. [Concomitant]
     Active Substance: LEVOTHYROXINE
  22. GEMFIBROZIL. [Concomitant]
     Active Substance: GEMFIBROZIL

REACTIONS (1)
  - Hospitalisation [None]
